FAERS Safety Report 8736533 (Version 3)
Quarter: 2013Q1

REPORT INFORMATION
  Report Type: Report from Study
  Country: GB (occurrence: GB)
  Receive Date: 20120822
  Receipt Date: 20130122
  Transmission Date: 20140127
  Serious: Yes (Hospitalization)
  Sender: FDA-Public Use
  Company Number: PHHO2012GB009849

PATIENT
  Age: 73 Year
  Sex: Male
  Weight: 80.3 kg

DRUGS (9)
  1. ACETYLSALICYLIC ACID [Suspect]
     Indication: CARDIAC DISORDER
     Dosage: 75 MG, UNK
     Dates: start: 20100923, end: 20120621
  2. WARFARIN [Suspect]
     Indication: CARDIAC FAILURE
     Dosage: AS DIRECTED
     Dates: start: 20100924, end: 20120621
  3. BLINDED ENALAPRIL [Suspect]
     Indication: CARDIAC FAILURE CHRONIC
     Dosage: DOUBLE BLINDED
     Route: 048
     Dates: start: 20120316, end: 20120621
  4. BLINDED LCZ696 [Suspect]
     Indication: CARDIAC FAILURE CHRONIC
     Dosage: DOUBLE BLINDED
     Route: 048
     Dates: start: 20120316, end: 20120621
  5. BLINDED NO TREATMENT RECEIVED [Suspect]
     Indication: CARDIAC FAILURE CHRONIC
     Dosage: DOUBLE BLINDED
     Route: 048
     Dates: start: 20120316, end: 20120621
  6. BLINDED ENALAPRIL [Suspect]
     Dosage: DOUBLE BLINDED
     Route: 048
     Dates: start: 20120626
  7. BLINDED LCZ696 [Suspect]
     Dosage: DOUBLE BLINDED
     Route: 048
     Dates: start: 20120626
  8. BLINDED NO TREATMENT RECEIVED [Suspect]
     Dosage: DOUBLE BLINDED
     Route: 048
     Dates: start: 20120626
  9. TAMSULOSIN [Concomitant]
     Indication: PROSTATE CANCER
     Dosage: UNK
     Dates: start: 2006

REACTIONS (1)
  - Mallory-Weiss syndrome [Recovered/Resolved]
